FAERS Safety Report 9370542 (Version 1)
Quarter: 2013Q2

REPORT INFORMATION
  Report Type: Spontaneous
  Country: IT (occurrence: IT)
  Receive Date: 20130626
  Receipt Date: 20130626
  Transmission Date: 20140414
  Serious: Yes (Hospitalization)
  Sender: FDA-Public Use
  Company Number: IT-GLAXOSMITHKLINE-B0902879A

PATIENT
  Age: 38 Year
  Sex: Male

DRUGS (2)
  1. IMIGRAN [Suspect]
     Indication: HEADACHE
     Dosage: 1TAB PER DAY
     Route: 048
     Dates: start: 20130611, end: 20130611
  2. NSAIDS [Concomitant]

REACTIONS (7)
  - Drug intolerance [Recovered/Resolved]
  - Nausea [Unknown]
  - Vomiting [Unknown]
  - Blood pressure increased [Unknown]
  - Hot flush [Unknown]
  - Paraesthesia [Unknown]
  - Diplopia [Unknown]
